FAERS Safety Report 19263845 (Version 1)
Quarter: 2021Q2

REPORT INFORMATION
  Report Type: Spontaneous
  Country: US (occurrence: US)
  Receive Date: 20210514
  Receipt Date: 20210514
  Transmission Date: 20210717
  Serious: Yes (Hospitalization)
  Sender: FDA-Public Use
  Company Number: None

PATIENT
  Age: 60 Year
  Sex: Female

DRUGS (7)
  1. VITAMIN D3 [Concomitant]
     Active Substance: CHOLECALCIFEROL
  2. GLIPIZIDE. [Concomitant]
     Active Substance: GLIPIZIDE
  3. PIQRAY [Suspect]
     Active Substance: ALPELISIB
     Indication: METASTASES TO BONE
     Route: 048
     Dates: start: 20201003, end: 20201207
  4. MEDROL DOSE PACK [Concomitant]
     Active Substance: METHYLPREDNISOLONE
     Dates: start: 20201202, end: 20201208
  5. AMLODIPINE [Concomitant]
     Active Substance: AMLODIPINE BESYLATE
  6. PIQRAY [Suspect]
     Active Substance: ALPELISIB
     Indication: BREAST CANCER STAGE IV
     Route: 048
     Dates: start: 20201003, end: 20201207
  7. PIQRAY [Suspect]
     Active Substance: ALPELISIB
     Indication: METASTASES TO LIVER
     Route: 048
     Dates: start: 20201003, end: 20201207

REACTIONS (5)
  - Dyspnoea [None]
  - Lung opacity [None]
  - Hypoxia [None]
  - Pneumonitis [None]
  - Rash [None]

NARRATIVE: CASE EVENT DATE: 20201207
